FAERS Safety Report 9201504 (Version 1)
Quarter: 2013Q2

REPORT INFORMATION
  Report Type: Spontaneous
  Country: US (occurrence: US)
  Receive Date: 20130401
  Receipt Date: 20130401
  Transmission Date: 20140414
  Serious: No
  Sender: FDA-Public Use
  Company Number: US-BAYER-2013-040835

PATIENT
  Age: 68 Year
  Sex: Female

DRUGS (4)
  1. ALEVE CAPLET [Suspect]
     Indication: HEADACHE
     Dosage: UNK
  2. ALEVE CAPLET [Suspect]
     Indication: ARTHRALGIA
  3. ALEVE CAPLET [Suspect]
     Indication: MYALGIA
  4. ALEVE CAPLET [Suspect]
     Indication: BACK PAIN

REACTIONS (1)
  - Drug ineffective [None]
